FAERS Safety Report 19539625 (Version 1)
Quarter: 2021Q3

REPORT INFORMATION
  Report Type: Spontaneous
  Country: US (occurrence: US)
  Receive Date: 20210713
  Receipt Date: 20210713
  Transmission Date: 20211014
  Serious: Yes (Death)
  Sender: FDA-Public Use
  Company Number: US-ENDO PHARMACEUTICALS INC-2021-006786

PATIENT
  Age: 55 Year
  Sex: Male

DRUGS (6)
  1. ZANTAC [Suspect]
     Active Substance: RANITIDINE HYDROCHLORIDE
     Indication: GASTROOESOPHAGEAL REFLUX DISEASE
     Dosage: 150 MG, DAILY
     Route: 065
     Dates: start: 200301, end: 201701
  2. RANITIDINE. [Suspect]
     Active Substance: RANITIDINE
     Dosage: 150 MG, DAILY
     Route: 065
     Dates: start: 200301, end: 201904
  3. RANITIDINE HYDROCHLORIDE. [Suspect]
     Active Substance: RANITIDINE HYDROCHLORIDE
     Dosage: 150 MG, DAILY
     Route: 065
     Dates: start: 200301, end: 201904
  4. ZANTAC [Suspect]
     Active Substance: RANITIDINE HYDROCHLORIDE
     Indication: GASTROOESOPHAGEAL REFLUX DISEASE
     Dosage: 150 MG, DAILY
     Route: 065
     Dates: start: 200301, end: 201701
  5. RANITIDINE. [Suspect]
     Active Substance: RANITIDINE
     Indication: GASTROOESOPHAGEAL REFLUX DISEASE
     Dosage: 75 MG, DAILY
     Route: 065
     Dates: start: 200301, end: 201904
  6. RANITIDINE HYDROCHLORIDE. [Suspect]
     Active Substance: RANITIDINE HYDROCHLORIDE
     Indication: GASTROOESOPHAGEAL REFLUX DISEASE
     Dosage: 75 MG, DAILY
     Route: 065
     Dates: start: 200301, end: 201904

REACTIONS (2)
  - Pancreatic carcinoma stage IV [Fatal]
  - Metastases to liver [Fatal]

NARRATIVE: CASE EVENT DATE: 20170927
